FAERS Safety Report 20850944 (Version 1)
Quarter: 2022Q2

REPORT INFORMATION
  Report Type: Spontaneous
  Country: US (occurrence: US)
  Receive Date: 20220519
  Receipt Date: 20220519
  Transmission Date: 20220721
  Serious: No
  Sender: FDA-Public Use
  Company Number: US-PFIZER INC-202200354791

PATIENT
  Age: 34 Year
  Sex: Male
  Weight: 99.79 kg

DRUGS (2)
  1. TESTOSTERONE [Suspect]
     Active Substance: TESTOSTERONE
     Indication: Hormone level abnormal
     Dosage: 1 ML, WEEKLY (200MG PER ML, INJECTS ONE ML WEEKLY)
     Dates: start: 2013
  2. TESTOSTERONE [Suspect]
     Active Substance: TESTOSTERONE
     Indication: Blood testosterone decreased

REACTIONS (4)
  - Product dose omission issue [Unknown]
  - Lethargy [Unknown]
  - Asthenia [Unknown]
  - Decreased appetite [Unknown]

NARRATIVE: CASE EVENT DATE: 20211101
